FAERS Safety Report 12262562 (Version 1)
Quarter: 2016Q2

REPORT INFORMATION
  Report Type: Spontaneous
  Country: US (occurrence: None)
  Receive Date: 20160412
  Receipt Date: 20160412
  Transmission Date: 20160815
  Serious: Yes (Other)
  Sender: FDA-Public Use
  Company Number: None

PATIENT
  Age: 39 Year
  Sex: Female
  Weight: 65.77 kg

DRUGS (12)
  1. VALIUM [Concomitant]
     Active Substance: DIAZEPAM
  2. ADVIL [Concomitant]
     Active Substance: IBUPROFEN
  3. NORVASC [Concomitant]
     Active Substance: AMLODIPINE BESYLATE
  4. FENTANYL. [Concomitant]
     Active Substance: FENTANYL
  5. VITAMIN D [Concomitant]
     Active Substance: CHOLECALCIFEROL
  6. PAXIL [Concomitant]
     Active Substance: PAROXETINE HYDROCHLORIDE
  7. FENTANYL. [Suspect]
     Active Substance: FENTANYL
     Indication: PAIN
     Dosage: 10 PATCH(ES) EVERY 3 DAYS APPLIED TO A SURFACE, USUALLY THE SKIN
  8. IMURAN [Concomitant]
     Active Substance: AZATHIOPRINE
  9. OXYCODONE [Concomitant]
     Active Substance: OXYCODONE
  10. BENADRYL [Concomitant]
     Active Substance: DIPHENHYDRAMINE HYDROCHLORIDE
  11. VASCEPA [Concomitant]
     Active Substance: ICOSAPENT ETHYL
  12. TYLENOL [Concomitant]
     Active Substance: ACETAMINOPHEN

REACTIONS (3)
  - Product substitution issue [None]
  - Product physical issue [None]
  - Drug effect decreased [None]

NARRATIVE: CASE EVENT DATE: 20160406
